FAERS Safety Report 4890523-3 (Version None)
Quarter: 2006Q1

REPORT INFORMATION
  Report Type: 
  Country: None (occurrence: None)
  Receive Date: 20060123
  Receipt Date: 20060110
  Transmission Date: 20060701
  Serious: Yes (Other)
  Sender: FDA-Public Use
  Company Number: US200601001596

PATIENT
  Sex: Female

DRUGS (2)
  1. HUMULIN 70/30 [Suspect]
     Indication: DIABETES MELLITUS
     Dosage: SEE IMAGE
     Dates: start: 20050101
  2. HUMULIN 70/30 [Suspect]
     Indication: DIABETES MELLITUS
     Dosage: SEE IMAGE
     Dates: start: 20050101

REACTIONS (5)
  - CARDIAC DISORDER [None]
  - DIABETES MELLITUS INADEQUATE CONTROL [None]
  - FALL [None]
  - LOSS OF CONSCIOUSNESS [None]
  - MUSCULOSKELETAL CHEST PAIN [None]
